FAERS Safety Report 7249504-7 (Version None)
Quarter: 2011Q1

REPORT INFORMATION
  Report Type: 
  Country: None (occurrence: None)
  Receive Date: 20110128
  Receipt Date: 20101220
  Transmission Date: 20110831
  Serious: Yes (Hospitalization, Other)
  Sender: FDA-Public Use
  Company Number: US-BAYER-200942928NA

PATIENT
  Sex: Female

DRUGS (13)
  1. NITROGLYCERIN [Concomitant]
  2. CELEBREX [Concomitant]
     Dosage: UNK
     Dates: start: 20040101, end: 20050101
  3. YAZ [Suspect]
     Indication: MENORRHAGIA
     Route: 048
     Dates: start: 20061001, end: 20090501
  4. ASPIRIN [Concomitant]
  5. LEVOTHYROXINE SODIUM [Concomitant]
  6. YASMIN [Suspect]
     Indication: MENORRHAGIA
     Route: 048
  7. GABAPENTIN [Concomitant]
  8. COUMADIN [Concomitant]
  9. LOVENOX [Concomitant]
  10. UNCODEABLE ^UNCLASSIFIABLE^ [Concomitant]
  11. CITALOPRAM [Concomitant]
  12. UNCODEABLE ^UNCLASSIFIABLE^ [Concomitant]
  13. WARFARIN SODIUM [Concomitant]

REACTIONS (2)
  - DEEP VEIN THROMBOSIS [None]
  - PULMONARY EMBOLISM [None]
